FAERS Safety Report 10683571 (Version 1)
Quarter: 2014Q4

REPORT INFORMATION
  Report Type: Spontaneous
  Country: US (occurrence: US)
  Receive Date: 20141230
  Receipt Date: 20141230
  Transmission Date: 20150529
  Serious: No
  Sender: FDA-Public Use
  Company Number: US-GLAXOSMITHKLINE-US2014GSK044054

PATIENT
  Age: 62 Year
  Sex: Male

DRUGS (2)
  1. MEKINIST [Suspect]
     Active Substance: TRAMETINIB DIMETHYL SULFOXIDE
     Indication: RECTAL CANCER
     Dosage: 2 MG, QD
     Route: 048
     Dates: start: 20141128
  2. TAFINLAR [Suspect]
     Active Substance: DABRAFENIB MESYLATE
     Indication: RECTAL CANCER
     Dosage: 150 MG, BID
     Route: 048
     Dates: start: 20141128

REACTIONS (3)
  - Nausea [Unknown]
  - Vision blurred [Unknown]
  - Rash [Unknown]
